FAERS Safety Report 18623224 (Version 2)
Quarter: 2022Q2

REPORT INFORMATION
  Report Type: Other
  Country: MX (occurrence: None)
  Receive Date: 20201216
  Receipt Date: 20220624
  Transmission Date: 20220721
  Serious: Yes (Disabling)
  Sender: FDA-Public Use
  Company Number: MX-ROCHE-2734018

PATIENT
  Age: 36 Year
  Sex: Female

DRUGS (8)
  1. OCREVUS [Suspect]
     Active Substance: OCRELIZUMAB
     Indication: Secondary progressive multiple sclerosis
     Route: 042
     Dates: start: 201906
  2. AMITRIPTYLINE [Concomitant]
     Active Substance: AMITRIPTYLINE
     Dosage: AT NIGHT WITHOUT STOPPING
  3. DOLAC [KETOROLAC TROMETHAMINE] [Concomitant]
     Indication: Pain
     Dosage: IN CASE OF SEVERE PAIN
  4. METHYLPREDNISOLONE [Concomitant]
     Active Substance: METHYLPREDNISOLONE
  5. BOTULINUM TOXIN NOS [Concomitant]
     Active Substance: BOTULINUM TOXIN NOS
  6. AMITRIPTYLINE HYDROCHLORIDE [Concomitant]
     Active Substance: AMITRIPTYLINE HYDROCHLORIDE
  7. DIPHENHYDRAMINE [Concomitant]
     Active Substance: DIPHENHYDRAMINE
     Dosage: IN SINGLE DOSE 30 MINUTES BEFORE OF OCREVUS INFUSION
     Route: 042
  8. BACLOFEN [Concomitant]
     Active Substance: BACLOFEN
     Dosage: DOSE AND FREQUENCY WERE NOT REPORTED

REACTIONS (10)
  - Relapsing multiple sclerosis [Unknown]
  - Gait disturbance [Unknown]
  - Paraparesis [Unknown]
  - Dysaesthesia [Unknown]
  - Muscle spasticity [Unknown]
  - Magnetic resonance imaging abnormal [Unknown]
  - Headache [Unknown]
  - Asthenia [Unknown]
  - Tachycardia [Unknown]
  - Hypotension [Unknown]

NARRATIVE: CASE EVENT DATE: 20190701
